FAERS Safety Report 8779898 (Version 2)
Quarter: 2012Q4

REPORT INFORMATION
  Report Type: 
  Country: JP (occurrence: JP)
  Receive Date: 20120912
  Receipt Date: 20120914
  Transmission Date: 20130627
  Serious: Yes (Other)
  Sender: FDA-Public Use
  Company Number: JP-SANOFI-AVENTIS-2012SA061514

PATIENT
  Age: 50 Year
  Sex: Female

DRUGS (5)
  1. OXALIPLATIN [Suspect]
     Indication: RECTAL CANCER
     Route: 041
  2. CALCIUM LEVOFOLINATE [Concomitant]
     Indication: RECTAL CANCER
  3. FLUOROURACIL [Concomitant]
     Indication: RECTAL CANCER
     Route: 040
  4. FLUOROURACIL [Concomitant]
     Indication: RECTAL CANCER
     Dosage: dose: 2400 mg/m2/d1-2 as continuous infusion
  5. BEVACIZUMAB [Concomitant]
     Indication: RECTAL CANCER

REACTIONS (1)
  - Female genital tract fistula [Unknown]
